FAERS Safety Report 21393245 (Version 1)
Quarter: 2022Q3

REPORT INFORMATION
  Report Type: Spontaneous
  Country: FR (occurrence: FR)
  Receive Date: 20220929
  Receipt Date: 20220929
  Transmission Date: 20221027
  Serious: Yes (Other)
  Sender: FDA-Public Use
  Company Number: None

PATIENT
  Age: 52 Year
  Sex: Female
  Weight: 88 kg

DRUGS (3)
  1. KEYTRUDA [Suspect]
     Active Substance: PEMBROLIZUMAB
     Indication: Breast cancer
     Dosage: 200MG / 21 DAYS
     Route: 042
     Dates: start: 20220808
  2. CARBOPLATIN [Concomitant]
     Active Substance: CARBOPLATIN
     Indication: Breast cancer
     Dosage: AUC 5 (TARGET AREA UNDER THE CONCENTRATION VERSUS TIME CURVE IN MG/ML?MIN), DAY1=DAY21
     Route: 042
     Dates: start: 20220808
  3. PACLITAXEL [Concomitant]
     Active Substance: PACLITAXEL
     Indication: Breast cancer
     Dosage: 80 MG/M?, WEEKLY, SOLUTION TO DILUTE FOR INFUSION
     Route: 042
     Dates: start: 20220808

REACTIONS (1)
  - Neutropenia [Recovered/Resolved]

NARRATIVE: CASE EVENT DATE: 20220824
